FAERS Safety Report 5381204-0 (Version None)
Quarter: 2007Q3

REPORT INFORMATION
  Report Type: 
  Country: None (occurrence: None)
  Receive Date: 20070706
  Receipt Date: 20070625
  Transmission Date: 20080115
  Serious: Yes (Other)
  Sender: FDA-Public Use
  Company Number: BR-PFIZER INC-2007053032

PATIENT
  Age: 61 Year
  Sex: Female
  Weight: 57 kg

DRUGS (6)
  1. VARENICLINE TABLETS [Suspect]
     Indication: SMOKING CESSATION THERAPY
     Route: 048
  2. ZOCOR [Concomitant]
  3. LIPITOR [Concomitant]
  4. ATENOL [Concomitant]
  5. SPIROLACTONE [Concomitant]
  6. AAS [Concomitant]

REACTIONS (3)
  - BREAST CANCER FEMALE [None]
  - NAUSEA [None]
  - WEIGHT INCREASED [None]
